FAERS Safety Report 6308361-3 (Version None)
Quarter: 2009Q3

REPORT INFORMATION
  Report Type: 
  Country: None (occurrence: None)
  Receive Date: 20090813
  Receipt Date: 20090811
  Transmission Date: 20100115
  Serious: No
  Sender: FDA-Public Use
  Company Number: US-B.I. PHARMACEUTICALS,INC./RIDGEFIELD-2009-BP-09442BP

PATIENT

DRUGS (4)
  1. VIRAMUNE [Suspect]
  2. TRUVADA [Concomitant]
  3. REYATAZ [Concomitant]
  4. NORVIR [Concomitant]

REACTIONS (2)
  - BLOOD CREATININE INCREASED [None]
  - OSTEOPENIA [None]
